FAERS Safety Report 7690907-4 (Version None)
Quarter: 2011Q3

REPORT INFORMATION
  Report Type: 
  Country: None (occurrence: None)
  Receive Date: 20110812
  Receipt Date: 20110803
  Transmission Date: 20111222
  Serious: Yes (Hospitalization, Other)
  Sender: FDA-Public Use
  Company Number: AXC-2011-000369

PATIENT
  Age: 3 Month
  Sex: Female

DRUGS (5)
  1. MEDIUM-CHAIN TRIGLYCERIDES (MEDIUM-CHAIN TRIGLYCERIDES) [Concomitant]
  2. CALCIUM LACTATE (CALCIUM LACTATE) [Concomitant]
  3. COLESTILAN (COLESTILAN) [Concomitant]
  4. FAT-SOLUBLE VITAMINS [Concomitant]
  5. URSODIOL [Suspect]
     Indication: CHOLESTASIS
     Dosage: 100 MG

REACTIONS (13)
  - OTITIS MEDIA [None]
  - UPPER RESPIRATORY TRACT INFECTION [None]
  - PRURITUS [None]
  - RICKETS [None]
  - CHOLESTASIS [None]
  - VITAMIN E DECREASED [None]
  - DEVELOPMENTAL DELAY [None]
  - TRANSAMINASES INCREASED [None]
  - BLOOD 25-HYDROXYCHOLECALCIFEROL DECREASED [None]
  - BLOOD COPPER INCREASED [None]
  - PROTEIN INDUCED BY VITAMIN K ABSENCE OR ANTAGONIST II INCREASED [None]
  - JAUNDICE [None]
  - DISEASE PROGRESSION [None]
